FAERS Safety Report 26012626 (Version 1)
Quarter: 2025Q4

REPORT INFORMATION
  Report Type: Spontaneous
  Country: US (occurrence: None)
  Receive Date: 20251106
  Receipt Date: 20251106
  Transmission Date: 20260118
  Serious: No
  Sender: FDA-CTU
  Company Number: None

PATIENT
  Sex: Male

DRUGS (3)
  1. VELETRI [Suspect]
     Active Substance: EPOPROSTENOL
  2. DEVICE [Suspect]
     Active Substance: DEVICE
     Indication: Pulmonary arterial hypertension
     Dosage: OTHER STRENGTH : 1.5MG/VL;?OTHER FREQUENCY : CONTINUOUS;?
     Route: 042
     Dates: start: 20250211
  3. WINREVAIR [Concomitant]
     Active Substance: SOTATERCEPT-CSRK

REACTIONS (4)
  - Headache [None]
  - Chest pain [None]
  - Device alarm issue [None]
  - Therapy interrupted [None]
